FAERS Safety Report 4765742-7 (Version None)
Quarter: 2005Q3

REPORT INFORMATION
  Report Type: 
  Country: None (occurrence: None)
  Receive Date: 20050912
  Receipt Date: 20050831
  Transmission Date: 20060218
  Serious: Yes (Hospitalization)
  Sender: FDA-Public Use
  Company Number: GB-NOVOPROD-246644

PATIENT
  Sex: Female
  Weight: 68 kg

DRUGS (10)
  1. LEVEMIR [Suspect]
     Indication: DIABETES MELLITUS
  2. TACROLIMUS [Concomitant]
     Dosage: 4 MG, BID
     Route: 048
  3. ASPIRIN [Concomitant]
     Dosage: 75 MG, QD
     Route: 048
  4. VALSARTAN [Concomitant]
     Dosage: 160 MG, QD
  5. DOXAZOSIN [Concomitant]
     Dosage: 4 MG, QD
     Route: 048
  6. FUROSEMIDE [Concomitant]
     Dosage: 30 MG, PRN
  7. CALCITRIOL [Concomitant]
     Dosage: .5 UG, QD
     Route: 048
  8. CALCICHEW [Concomitant]
     Dosage: 2 TAB, UNK
  9. HUMALOG [Concomitant]
     Dosage: 2000 IU, QD
  10. MYCOPHENOLATE MOFETIL [Concomitant]
     Dosage: 250 MG, BID
     Route: 048

REACTIONS (1)
  - CEREBROVASCULAR ACCIDENT [None]
